FAERS Safety Report 8399802-9 (Version None)
Quarter: 2012Q2

REPORT INFORMATION
  Report Type: 
  Country: None (occurrence: None)
  Receive Date: 20120531
  Receipt Date: 20120528
  Transmission Date: 20120825
  Serious: Yes (Other)
  Sender: FDA-Public Use
  Company Number: US-TEVA-340457USA

PATIENT
  Age: 25 Year
  Sex: Female
  Weight: 70 kg

DRUGS (2)
  1. ACETAMINOPHEN [Suspect]
     Indication: INTENTIONAL OVERDOSE
     Dosage: 72 TABLETS (46.8G)
     Route: 048
  2. DIPHENHYDRAMINE HCL [Suspect]
     Indication: INTENTIONAL OVERDOSE
     Dosage: 4 X 25MG CAPSULES
     Route: 048

REACTIONS (3)
  - SUICIDE ATTEMPT [None]
  - DRUG LEVEL ABOVE THERAPEUTIC [None]
  - INTENTIONAL OVERDOSE [None]
